FAERS Safety Report 13056561 (Version 2)
Quarter: 2017Q4

REPORT INFORMATION
  Report Type: Report from Study
  Country: US (occurrence: US)
  Receive Date: 20161222
  Receipt Date: 20171109
  Transmission Date: 20180320
  Serious: Yes (Hospitalization)
  Sender: FDA-Public Use
  Company Number: US-ACTELION-A-US2016-147324

PATIENT
  Age: 34 Year
  Sex: Female

DRUGS (4)
  1. OPSUMIT [Suspect]
     Active Substance: MACITENTAN
     Indication: PULMONARY ARTERIAL HYPERTENSION
     Dosage: 10 MG, QD
     Route: 048
     Dates: start: 20160712, end: 20170604
  2. AMLODIPINE [Concomitant]
     Active Substance: AMLODIPINE BESYLATE
  3. SILDENAFIL CITRATE. [Concomitant]
     Active Substance: SILDENAFIL CITRATE
  4. RITUXIMAB. [Concomitant]
     Active Substance: RITUXIMAB

REACTIONS (9)
  - Hypokalaemia [Unknown]
  - Chest pain [Unknown]
  - Pulmonary haemorrhage [Unknown]
  - Acute respiratory failure [Unknown]
  - Acute kidney injury [Unknown]
  - Hypoxia [Unknown]
  - Joint dislocation [Unknown]
  - Respiratory failure [Unknown]
  - Bronchitis [Unknown]

NARRATIVE: CASE EVENT DATE: 20170422
